FAERS Safety Report 24041183 (Version 1)
Quarter: 2024Q3

REPORT INFORMATION
  Report Type: Spontaneous
  Country: US (occurrence: US)
  Receive Date: 20240702
  Receipt Date: 20240702
  Transmission Date: 20241016
  Serious: Yes (Life-Threatening, Hospitalization, Other)
  Sender: LUPIN
  Company Number: US-LUPIN PHARMACEUTICALS INC.-2024-05517

PATIENT
  Age: 18 Year
  Sex: Female

DRUGS (2)
  1. LAMOTRIGINE [Suspect]
     Active Substance: LAMOTRIGINE
     Indication: Product used for unknown indication
     Dosage: 100 MG, QD
     Route: 065
  2. PENTOBARBITAL [Concomitant]
     Active Substance: PENTOBARBITAL
     Indication: Seizure
     Dosage: UNK
     Route: 065

REACTIONS (11)
  - Blood alkaline phosphatase increased [Recovering/Resolving]
  - Status epilepticus [Recovering/Resolving]
  - Tachycardia [Recovering/Resolving]
  - Pneumonia aspiration [Recovering/Resolving]
  - Aspartate aminotransferase increased [Recovering/Resolving]
  - Alanine aminotransferase increased [Recovering/Resolving]
  - Drug reaction with eosinophilia and systemic symptoms [Recovering/Resolving]
  - Brain oedema [Recovering/Resolving]
  - Human herpesvirus 6 encephalitis [Recovering/Resolving]
  - Human herpesvirus 6 infection reactivation [Recovered/Resolved]
  - Acute respiratory distress syndrome [Recovering/Resolving]
